FAERS Safety Report 17274562 (Version 4)
Quarter: 2020Q2

REPORT INFORMATION
  Report Type: Report from Study
  Country: BG (occurrence: BG)
  Receive Date: 20200115
  Receipt Date: 20200413
  Transmission Date: 20200713
  Serious: Yes (Hospitalization)
  Sender: FDA-Public Use
  Company Number: BG-B.I. PHARMACEUTICALS,INC./RIDGEFIELD-2020-BI-001657

PATIENT
  Age: 69 Year
  Sex: Male

DRUGS (1)
  1. PRAXBIND [Suspect]
     Active Substance: IDARUCIZUMAB
     Indication: PROCOAGULANT THERAPY
     Dosage: 100 ML IV OVER 10 MINUTES
     Route: 042

REACTIONS (1)
  - Simple partial seizures [Recovered/Resolved]

NARRATIVE: CASE EVENT DATE: 20191222
